FAERS Safety Report 24626294 (Version 1)
Quarter: 2024Q4

REPORT INFORMATION
  Report Type: Report from Study
  Country: US (occurrence: US)
  Receive Date: 20241115
  Receipt Date: 20241115
  Transmission Date: 20250115
  Serious: Yes (Hospitalization, Other)
  Sender: NOVO NORDISK
  Company Number: US-NOVOPROD-1288569

PATIENT
  Age: 65 Year
  Sex: Male
  Weight: 104.8 kg

DRUGS (2)
  1. OZEMPIC [Suspect]
     Active Substance: SEMAGLUTIDE
     Dosage: 0.50 MG
     Route: 058
     Dates: start: 2022
  2. OZEMPIC [Suspect]
     Active Substance: SEMAGLUTIDE
     Indication: Type 2 diabetes mellitus
     Dosage: 0.25 MG
     Route: 058
     Dates: start: 2022

REACTIONS (14)
  - Weight decreased [Recovered/Resolved]
  - Blood glucose increased [Recovered/Resolved]
  - Myocardial infarction [Unknown]
  - Loss of consciousness [Unknown]
  - Illness [Not Recovered/Not Resolved]
  - Cardiac operation [Recovered/Resolved]
  - Dizziness [Unknown]
  - Diarrhoea [Unknown]
  - Diabetes mellitus inadequate control [Recovered/Resolved]
  - Blood glucose increased [Unknown]
  - Dyspnoea [Unknown]
  - Palpitations [Unknown]
  - Inappropriate schedule of product administration [Unknown]
  - Product dose omission issue [Unknown]

NARRATIVE: CASE EVENT DATE: 20220101
